FAERS Safety Report 7875614-7 (Version None)
Quarter: 2011Q4

REPORT INFORMATION
  Report Type: 
  Country: None (occurrence: None)
  Receive Date: 20111031
  Receipt Date: 20111017
  Transmission Date: 20120403
  Serious: Yes (Life-Threatening, Hospitalization, Other)
  Sender: FDA-Public Use
  Company Number: BR-ROCHE-594610

PATIENT
  Sex: Female
  Weight: 54 kg

DRUGS (16)
  1. MABTHERA [Suspect]
     Dosage: FREQUENCY: TWO INFUSIONS/ EVERY 15 DAYS
     Route: 042
     Dates: start: 20100617, end: 20100701
  2. MABTHERA [Suspect]
     Route: 042
  3. GLIMEPIRIDE [Concomitant]
  4. METFORMIN HYDROCHLORIDE [Concomitant]
  5. MABTHERA [Suspect]
     Dosage: FREQ: 2 INFUSIONS
     Route: 042
     Dates: start: 20090601, end: 20090701
  6. PREDNISOLONE [Concomitant]
     Indication: ARTHRALGIA
     Route: 048
  7. PREDNISONE [Concomitant]
  8. ENALAPRIL [Concomitant]
  9. METHYLPREDNISOLONE [Concomitant]
     Dates: start: 20110519, end: 20110519
  10. MABTHERA [Suspect]
     Route: 042
  11. NAPROXEN [Concomitant]
  12. MACRODANTINA [Concomitant]
  13. MABTHERA [Suspect]
     Indication: RHEUMATOID ARTHRITIS
     Dosage: FORM: INFUSION, DOSAGE: 2 INFUSIONS
     Route: 042
     Dates: start: 20080101, end: 20081023
  14. LEVOTHYROXINE SODIUM [Concomitant]
  15. DIPHENHYDRAMINE HCL [Concomitant]
     Dates: start: 20110519, end: 20110519
  16. METFORMIN HCL [Concomitant]

REACTIONS (31)
  - PRURITUS [None]
  - OEDEMA PERIPHERAL [None]
  - DYSPNOEA [None]
  - HYPERTENSION [None]
  - MALAISE [None]
  - DIVERTICULITIS [None]
  - DIABETES MELLITUS [None]
  - THIRST [None]
  - INFLUENZA [None]
  - HOT FLUSH [None]
  - RENAL PAIN [None]
  - BONE PAIN [None]
  - PAIN IN EXTREMITY [None]
  - RHEUMATOID ARTHRITIS [None]
  - NECK PAIN [None]
  - ABDOMINAL DISTENSION [None]
  - MUSCLE SPASMS [None]
  - ABASIA [None]
  - BACTERAEMIA [None]
  - PNEUMONIA [None]
  - HEADACHE [None]
  - VASCULAR CALCIFICATION [None]
  - DRUG INEFFECTIVE [None]
  - SKIN FISSURES [None]
  - SKIN EXFOLIATION [None]
  - DRY MOUTH [None]
  - FEELING HOT [None]
  - PSORIASIS [None]
  - DIZZINESS [None]
  - HYPOAESTHESIA [None]
  - SKIN PAPILLOMA [None]
